FAERS Safety Report 5397801-2 (Version None)
Quarter: 2007Q3

REPORT INFORMATION
  Report Type: 
  Country: None (occurrence: None)
  Receive Date: 20070724
  Receipt Date: 20070724
  Transmission Date: 20080115
  Serious: Yes (Death, Other)
  Sender: FDA-Public Use
  Company Number: None

PATIENT
  Age: 74 Year
  Sex: Male

DRUGS (8)
  1. WARFARIN SODIUM [Suspect]
     Indication: MITRAL VALVE REPLACEMENT
     Dosage: 4 MG UNDOCUMENTED PO
     Route: 048
  2. LIDOCAINE [Concomitant]
  3. PROPOFOL [Concomitant]
  4. METRONIDAZOLE HCL [Concomitant]
  5. ACETYLCYSTEINE [Concomitant]
  6. DIGOXIN [Concomitant]
  7. LOPRESSOR [Concomitant]
  8. CEFTRIAXONE [Concomitant]

REACTIONS (3)
  - CELLULITIS [None]
  - GANGRENE [None]
  - IMPAIRED HEALING [None]
